FAERS Safety Report 9057732 (Version 1)
Quarter: 2013Q1

REPORT INFORMATION
  Report Type: Spontaneous
  Country: US (occurrence: None)
  Receive Date: 20130204
  Receipt Date: 20130204
  Transmission Date: 20140127
  Serious: Yes (Hospitalization)
  Sender: FDA-Public Use
  Company Number: None

PATIENT
  Age: 65 Year
  Sex: Male
  Weight: 72.2 kg

DRUGS (1)
  1. QUETIAPINE [Suspect]
     Dates: start: 20120702, end: 20120715

REACTIONS (6)
  - Dizziness postural [None]
  - Fall [None]
  - Loss of consciousness [None]
  - Arthropathy [None]
  - Diplopia [None]
  - Syncope [None]
